FAERS Safety Report 24849770 (Version 2)
Quarter: 2025Q1

REPORT INFORMATION
  Report Type: Spontaneous
  Country: TW (occurrence: TW)
  Receive Date: 20250116
  Receipt Date: 20250212
  Transmission Date: 20250409
  Serious: Yes (Hospitalization)
  Sender: PFIZER
  Company Number: TW-PFIZER INC-202500008363

PATIENT

DRUGS (1)
  1. ZYVOX [Suspect]
     Active Substance: LINEZOLID
     Indication: Osteomyelitis
     Route: 048

REACTIONS (2)
  - Drug ineffective for unapproved indication [Recovering/Resolving]
  - Off label use [Unknown]
